FAERS Safety Report 21216221 (Version 2)
Quarter: 2022Q3

REPORT INFORMATION
  Report Type: Spontaneous
  Country: US (occurrence: US)
  Receive Date: 20220816
  Receipt Date: 20220902
  Transmission Date: 20221026
  Serious: Yes (Hospitalization, Other)
  Sender: FDA-Public Use
  Company Number: US-SA-SAC20220812001435

PATIENT
  Age: 46 Year
  Sex: Female
  Weight: 88 kg

DRUGS (59)
  1. AUBAGIO [Suspect]
     Active Substance: TERIFLUNOMIDE
     Indication: Multiple sclerosis
     Dosage: 1 DF, QD
     Route: 048
     Dates: start: 2017, end: 201904
  2. AUBAGIO [Suspect]
     Active Substance: TERIFLUNOMIDE
     Dosage: 14 DF, QD
     Route: 048
     Dates: start: 20191012
  3. BOTOX [Concomitant]
     Active Substance: ONABOTULINUMTOXINA
  4. BOTOX [Concomitant]
     Active Substance: ONABOTULINUMTOXINA
  5. VITAMIN B2 [Concomitant]
     Active Substance: RIBOFLAVIN
  6. COUMADIN [Concomitant]
     Active Substance: WARFARIN SODIUM
  7. COUMADIN [Concomitant]
     Active Substance: WARFARIN SODIUM
  8. CALCITRIOL [Concomitant]
     Active Substance: CALCITRIOL
  9. CALCITRIOL [Concomitant]
     Active Substance: CALCITRIOL
  10. SYNTHROID [Concomitant]
     Active Substance: LEVOTHYROXINE SODIUM
  11. SYNTHROID [Concomitant]
     Active Substance: LEVOTHYROXINE SODIUM
  12. REMODULIN [Concomitant]
     Active Substance: TREPROSTINIL
  13. EPINEPHRINE [Concomitant]
     Active Substance: EPINEPHRINE
  14. EPINEPHRINE [Concomitant]
     Active Substance: EPINEPHRINE
  15. SINGULAIR [Concomitant]
     Active Substance: MONTELUKAST SODIUM
  16. SINGULAIR [Concomitant]
     Active Substance: MONTELUKAST SODIUM
  17. ALLEGRA [Concomitant]
     Active Substance: FEXOFENADINE HYDROCHLORIDE
  18. ALLEGRA [Concomitant]
     Active Substance: FEXOFENADINE HYDROCHLORIDE
  19. XYZAL [Concomitant]
     Active Substance: LEVOCETIRIZINE DIHYDROCHLORIDE
  20. XYZAL [Concomitant]
     Active Substance: LEVOCETIRIZINE DIHYDROCHLORIDE
  21. OMEPRAZOLE [Concomitant]
     Active Substance: OMEPRAZOLE
  22. OMEPRAZOLE [Concomitant]
     Active Substance: OMEPRAZOLE
  23. XANAX [Concomitant]
     Active Substance: ALPRAZOLAM
  24. XANAX [Concomitant]
     Active Substance: ALPRAZOLAM
  25. CELECOXIB [Concomitant]
     Active Substance: CELECOXIB
  26. CELECOXIB [Concomitant]
     Active Substance: CELECOXIB
  27. TRILEPTAL [Concomitant]
     Active Substance: OXCARBAZEPINE
  28. TRILEPTAL [Concomitant]
     Active Substance: OXCARBAZEPINE
  29. REVATIO [Concomitant]
     Active Substance: SILDENAFIL CITRATE
  30. REVATIO [Concomitant]
     Active Substance: SILDENAFIL CITRATE
  31. HYDROCHLOROTHIAZIDE [Concomitant]
     Active Substance: HYDROCHLOROTHIAZIDE
  32. HYDROCHLOROTHIAZIDE [Concomitant]
     Active Substance: HYDROCHLOROTHIAZIDE
  33. VITAMIN D3 [Concomitant]
     Active Substance: CHOLECALCIFEROL
  34. VITAMIN D3 [Concomitant]
     Active Substance: CHOLECALCIFEROL
  35. NEURONTIN [Concomitant]
     Active Substance: GABAPENTIN
  36. NEURONTIN [Concomitant]
     Active Substance: GABAPENTIN
  37. TRACLEER [Concomitant]
     Active Substance: BOSENTAN
  38. IRON [Concomitant]
     Active Substance: IRON
  39. IRON [Concomitant]
     Active Substance: IRON
  40. ALDACTONE [Concomitant]
     Active Substance: SPIRONOLACTONE
  41. SILDENAFIL CITRATE [Concomitant]
     Active Substance: SILDENAFIL CITRATE
  42. SILDENAFIL CITRATE [Concomitant]
     Active Substance: SILDENAFIL CITRATE
  43. BOSENTAN [Concomitant]
     Active Substance: BOSENTAN
  44. BOSENTAN [Concomitant]
     Active Substance: BOSENTAN
  45. POTASSIUM CHLORIDE [Concomitant]
     Active Substance: POTASSIUM CHLORIDE
  46. FOLIC ACID [Concomitant]
     Active Substance: FOLIC ACID
  47. IMODIUM [Concomitant]
     Active Substance: LOPERAMIDE HYDROCHLORIDE
  48. CALCIUM CITRATE [Concomitant]
     Active Substance: CALCIUM CITRATE
  49. VITAMIN D NOS [Concomitant]
     Active Substance: VITAMIN D NOS
  50. KLONOPIN [Concomitant]
     Active Substance: CLONAZEPAM
  51. FLOLAN [Concomitant]
     Active Substance: EPOPROSTENOL SODIUM
  52. ZYRTEC [Concomitant]
     Active Substance: CETIRIZINE HYDROCHLORIDE
  53. PREVACID [Concomitant]
     Active Substance: LANSOPRAZOLE
  54. TRACLEER [Concomitant]
     Active Substance: BOSENTAN
  55. CANRENOATE POTASSIUM [Concomitant]
     Active Substance: CANRENOATE POTASSIUM
  56. VITAMIN B12 [Concomitant]
     Active Substance: CYANOCOBALAMIN
  57. OXYGEN [Concomitant]
     Active Substance: OXYGEN
  58. MAGNESIUM [Concomitant]
     Active Substance: MAGNESIUM
  59. CITRACAL PLUS D [Concomitant]

REACTIONS (3)
  - Syncope [Unknown]
  - Heavy menstrual bleeding [Recovered/Resolved]
  - Dyspnoea exertional [Unknown]

NARRATIVE: CASE EVENT DATE: 20220712
